FAERS Safety Report 9518461 (Version 1)
Quarter: 2013Q3

REPORT INFORMATION
  Report Type: Spontaneous
  Country: US (occurrence: None)
  Receive Date: 20130910
  Receipt Date: 20130910
  Transmission Date: 20140515
  Serious: No
  Sender: FDA-Public Use
  Company Number: None

PATIENT
  Age: 67 Year
  Sex: Male
  Weight: 99.5 kg

DRUGS (1)
  1. CIPROFLOXACIN [Suspect]
     Indication: SKIN INFECTION
     Route: 048
     Dates: start: 20110829, end: 20110907

REACTIONS (2)
  - Rash [None]
  - Pruritus [None]
